FAERS Safety Report 20428564 (Version 1)
Quarter: 2022Q1

REPORT INFORMATION
  Report Type: Spontaneous
  Country: US (occurrence: US)
  Receive Date: 20220204
  Receipt Date: 20220204
  Transmission Date: 20220423
  Serious: No
  Sender: FDA-Public Use
  Company Number: US-APOTEX-2022AP002073

PATIENT
  Sex: Male

DRUGS (1)
  1. BUDESONIDE [Suspect]
     Active Substance: BUDESONIDE
     Indication: Multiple allergies
     Dosage: 4 DOSAGE FORM, QD (2 PUFFS ON EACH NOSTRIL)
     Dates: start: 20211215, end: 20211215

REACTIONS (6)
  - Headache [Not Recovered/Not Resolved]
  - Parosmia [Not Recovered/Not Resolved]
  - Product residue present [Not Recovered/Not Resolved]
  - Dyspnoea [Not Recovered/Not Resolved]
  - Dizziness [Not Recovered/Not Resolved]
  - Product use complaint [Not Recovered/Not Resolved]

NARRATIVE: CASE EVENT DATE: 20211215
